FAERS Safety Report 8345466-X (Version None)
Quarter: 2012Q2

REPORT INFORMATION
  Report Type: 
  Country: None (occurrence: None)
  Receive Date: 20120504
  Receipt Date: 20120423
  Transmission Date: 20120825
  Serious: Yes (Hospitalization, Other)
  Sender: FDA-Public Use
  Company Number: 2012MA004865

PATIENT
  Age: 33 Year
  Sex: Female

DRUGS (5)
  1. FLORINEF [Concomitant]
  2. TEGRETOL [Concomitant]
  3. CARBAMAZEPINE [Suspect]
     Indication: EPILEPSY
     Dosage: 800 MG; QD
  4. HYDROCORTISONE [Concomitant]
  5. DEXAMETHASONE ACETATE [Concomitant]

REACTIONS (11)
  - ASTHENIA [None]
  - ADRENAL INSUFFICIENCY [None]
  - HAEMOLYSIS [None]
  - BLOOD CORTICOTROPHIN INCREASED [None]
  - MUSCLE SPASMS [None]
  - VOMITING [None]
  - HYPONATRAEMIA [None]
  - DEHYDRATION [None]
  - HYPERKALAEMIA [None]
  - NAUSEA [None]
  - PROTEIN TOTAL INCREASED [None]
